FAERS Safety Report 15950826 (Version 2)
Quarter: 2019Q1

REPORT INFORMATION
  Report Type: Spontaneous
  Country: US (occurrence: US)
  Receive Date: 20190211
  Receipt Date: 20190228
  Transmission Date: 20190417
  Serious: No
  Sender: FDA-Public Use
  Company Number: US-ELI_LILLY_AND_COMPANY-US201902000299

PATIENT
  Age: 14 Year
  Sex: Female

DRUGS (2)
  1. HUMATROPE [Suspect]
     Active Substance: SOMATROPIN
     Indication: TURNER^S SYNDROME
     Dosage: 0.2 MG, DAILY
     Route: 058
     Dates: start: 20190130
  2. ESTROGEN [Concomitant]
     Active Substance: ESTROGENS
     Indication: TURNER^S SYNDROME
     Dosage: 0.025 MG, 2/M
     Route: 065
     Dates: start: 20181127

REACTIONS (2)
  - Product dose omission [Unknown]
  - Incorrect dose administered [Unknown]

NARRATIVE: CASE EVENT DATE: 20190130
